FAERS Safety Report 5607988-1 (Version None)
Quarter: 2008Q1

REPORT INFORMATION
  Report Type: 
  Country: None (occurrence: None)
  Receive Date: 20080130
  Receipt Date: 20080124
  Transmission Date: 20080703
  Serious: Yes (Other)
  Sender: FDA-Public Use
  Company Number: B0501206A

PATIENT
  Age: 9 Year
  Sex: Male
  Weight: 21.5 kg

DRUGS (6)
  1. RELENZA [Suspect]
     Indication: INFLUENZA
     Dosage: 10MG TWICE PER DAY
     Route: 055
     Dates: start: 20071203, end: 20071207
  2. KLARICID [Concomitant]
     Indication: INFECTION
     Dosage: 2.2G PER DAY
     Route: 048
     Dates: start: 20071203, end: 20071216
  3. TAVEGYL [Concomitant]
     Indication: INFLUENZA
     Dosage: .3G PER DAY
     Route: 048
     Dates: start: 20071206, end: 20071210
  4. ASVERIN [Concomitant]
     Indication: INFLUENZA
     Dosage: .51G PER DAY
     Route: 048
     Dates: start: 20071203, end: 20071210
  5. MUCODYNE [Concomitant]
     Indication: INFLUENZA
     Dosage: .81G PER DAY
     Route: 048
     Dates: start: 20071203, end: 20071210
  6. CALONAL [Concomitant]
     Route: 065
     Dates: start: 20071203

REACTIONS (1)
  - ABNORMAL BEHAVIOUR [None]
